FAERS Safety Report 10586357 (Version 2)
Quarter: 2014Q4

REPORT INFORMATION
  Report Type: Report from Study
  Country: DE (occurrence: DE)
  Receive Date: 20141117
  Receipt Date: 20141208
  Transmission Date: 20150529
  Serious: Yes (Death)
  Sender: FDA-Public Use
  Company Number: DE-BEH-2014046196

PATIENT
  Age: 67 Year
  Sex: Male
  Weight: 100 kg

DRUGS (20)
  1. PRIVIGEN [Suspect]
     Active Substance: HUMAN IMMUNOGLOBULIN G
     Indication: CHRONIC LYMPHOCYTIC LEUKAEMIA
     Dosage: INFUSIONRATE  MINIMUM:0.5 ML/MIN  MAXIMUM: 1.3 ML/MIN
     Route: 042
     Dates: start: 20140325, end: 20140325
  2. ERYTHROCYTE CONCENTRATE [Concomitant]
     Active Substance: HUMAN RED BLOOD CELL
     Indication: ANAEMIA
     Dates: start: 2014, end: 2014
  3. PRIVIGEN [Suspect]
     Active Substance: HUMAN IMMUNOGLOBULIN G
     Dosage: INFUSIONSRATE MINIMUM: 0.5 ML/MIN MAXIMUM: 1.3 ML/MIN
     Route: 042
     Dates: start: 20140422, end: 20140422
  4. MIRTAZAPIN [Concomitant]
     Active Substance: MIRTAZAPINE
     Indication: PROGRESSIVE MULTIFOCAL LEUKOENCEPHALOPATHY
     Dates: start: 2014, end: 2014
  5. CALCIVIT CHEWABLE TABLET [Concomitant]
     Dosage: THERAPY PROPOSAL (01-AUG-2014): 1-0-0
  6. LEVOTHYROXIN [Concomitant]
     Active Substance: LEVOTHYROXINE
     Dosage: THERAPY PROPOSAL (01-AUG-2014): 1-0-0
  7. PROTAPHANE INSULIN [Concomitant]
     Dosage: THERAPY PROPOSAL (01-AUG-2014): 22-0-0-22
     Route: 058
  8. PRIVIGEN [Suspect]
     Active Substance: HUMAN IMMUNOGLOBULIN G
     Dosage: INFUSION RATE:  MINIMUM: 0.5 ML/MIN  MAXIMUM: 1.3ML/MIN
     Route: 042
     Dates: start: 20140224, end: 20140224
  9. FOSCAVIR [Concomitant]
     Active Substance: FOSCARNET SODIUM
     Indication: PROGRESSIVE MULTIFOCAL LEUKOENCEPHALOPATHY
     Dates: start: 2014, end: 2014
  10. ALLOPURINOL. [Concomitant]
     Active Substance: ALLOPURINOL
     Dosage: THERAPY PROPOSAL (01-AUG-2014): 0-0-1
  11. MACROGOL SAC [Concomitant]
     Dosage: THERAPY PROPOSAL (01-AUG-2014): 1-1-0
  12. ACTRAPID [Concomitant]
     Active Substance: INSULIN HUMAN
     Dosage: DOSE ACCORDING TO BLOOD SUGAR, THERAPY PROPOSAL (01-AUG-2014): 1-0-1
     Route: 058
  13. MEFLOQUIN [Concomitant]
     Indication: PROGRESSIVE MULTIFOCAL LEUKOENCEPHALOPATHY
     Dates: start: 2014, end: 2014
  14. FUROSEMID [Concomitant]
     Active Substance: FUROSEMIDE
     Dosage: THERAPY PROPOSAL (01-AUG-2014): 1-0-0
  15. PANTOPRAZOLE [Concomitant]
     Active Substance: PANTOPRAZOLE SODIUM
     Dosage: THERAPY PROPOSAL (01-AUG-2014): 1-0-0
  16. CANDESARTAN [Concomitant]
     Active Substance: CANDESARTAN
     Dosage: THERAPY PROPOSAL (01-AUG-2014): 1-0-0
  17. AMLODIPIN [Concomitant]
     Active Substance: AMLODIPINE BESYLATE
     Dosage: THERAPY PROPOSAL (01-AUG-2014): 2-0-0
  18. ANTIBIOTICS [Concomitant]
     Active Substance: UNSPECIFIED INGREDIENT
     Dates: start: 2014, end: 2014
  19. BISOPROLOL [Concomitant]
     Active Substance: BISOPROLOL
     Dosage: THERAPY PROPOSAL (01-AUG-2014): 1-0-0
  20. THROMBOCYTE CONCENTRATE [Concomitant]
     Active Substance: PLATELET CONCENTRATE HUMAN
     Indication: THROMBOCYTOPENIA
     Dates: start: 2014, end: 2014

REACTIONS (1)
  - Chronic lymphocytic leukaemia [Fatal]
